FAERS Safety Report 24980799 (Version 1)
Quarter: 2025Q1

REPORT INFORMATION
  Report Type: Spontaneous
  Country: CN (occurrence: CN)
  Receive Date: 20250218
  Receipt Date: 20250218
  Transmission Date: 20250409
  Serious: Yes (Hospitalization, Other)
  Sender: TAKEDA
  Company Number: CN-HUTCHMED LIMITED-HMP2025CN00355

PATIENT
  Age: 59 Year
  Sex: Male
  Weight: 60 kg

DRUGS (3)
  1. FRUQUINTINIB [Suspect]
     Active Substance: FRUQUINTINIB
     Indication: Colon cancer
     Dosage: 4 MILLIGRAM, QD
     Dates: start: 20241219, end: 20250208
  2. SINTILIMAB [Concomitant]
     Active Substance: SINTILIMAB
     Indication: Colon cancer
     Dosage: 200 MILLIGRAM, QD
     Dates: start: 20241219, end: 20241219
  3. SODIUM CHLORIDE [Concomitant]
     Active Substance: SODIUM CHLORIDE
     Indication: Vehicle solution use
     Dosage: 100 MILLILITER, QD
     Dates: start: 20241219, end: 20241219

REACTIONS (1)
  - Myelosuppression [Recovering/Resolving]

NARRATIVE: CASE EVENT DATE: 20250208
